FAERS Safety Report 5338655-X (Version None)
Quarter: 2007Q2

REPORT INFORMATION
  Report Type: 
  Country: None (occurrence: None)
  Receive Date: 20070530
  Receipt Date: 20070525
  Transmission Date: 20071010
  Serious: Yes (Other)
  Sender: FDA-Public Use
  Company Number: B0452503A

PATIENT
  Age: 42 Year
  Sex: Female

DRUGS (1)
  1. NICOTINE [Suspect]
     Dosage: 21MG SINGLE DOSE
     Route: 050

REACTIONS (8)
  - APPLICATION SITE ERYTHEMA [None]
  - APPLICATION SITE PAIN [None]
  - BURNING SENSATION [None]
  - PHOTOSENSITIVITY REACTION [None]
  - PYREXIA [None]
  - SKIN IRRITATION [None]
  - SUNBURN [None]
  - WOUND [None]
